FAERS Safety Report 9918714 (Version 4)
Quarter: 2015Q1

REPORT INFORMATION
  Report Type: Report from Study
  Country: TH (occurrence: TH)
  Receive Date: 20140224
  Receipt Date: 20150312
  Transmission Date: 20150721
  Serious: Yes (Hospitalization)
  Sender: FDA-Public Use
  Company Number: TH-ROCHE-1162403

PATIENT
  Age: 49 Year
  Sex: Male
  Weight: 50 kg

DRUGS (16)
  1. OBINUTUZUMAB [Suspect]
     Active Substance: OBINUTUZUMAB
     Indication: DIFFUSE LARGE B-CELL LYMPHOMA
     Dosage: LAST VOLUME TAKEN 250ML AT DOSE CONCENTRATION 4/MG/ML, DATE OF LAST DOSE PRIOR TO SAE 20/NOV/2012
     Route: 042
     Dates: start: 20121002
  2. BACTRIM [Concomitant]
     Active Substance: SULFAMETHOXAZOLE\TRIMETHOPRIM
     Indication: INFECTION PROPHYLAXIS
     Route: 065
     Dates: start: 20121002, end: 20130401
  3. PARACETAMOL [Concomitant]
     Active Substance: ACETAMINOPHEN
     Indication: PREMEDICATION
     Route: 065
     Dates: start: 20121002, end: 20130305
  4. ONSIA [Concomitant]
     Indication: PREMEDICATION
     Dosage: INDICATION: PREMEDICATION
     Route: 065
     Dates: start: 20121002, end: 20130305
  5. DOXORUBICIN [Suspect]
     Active Substance: DOXORUBICIN
     Indication: DIFFUSE LARGE B-CELL LYMPHOMA
     Dosage: LAST DOSE 78MG, DATE OF LAST DOSE PRIOR TO SAE 20/NOV/2012
     Route: 042
     Dates: start: 20121002
  6. PIRITON [Concomitant]
     Active Substance: CHLORPHENIRAMINE MALEATE
     Indication: PREMEDICATION
     Route: 065
     Dates: start: 20121002, end: 20130305
  7. PREDNISOLONE. [Suspect]
     Active Substance: PREDNISOLONE
     Indication: DIFFUSE LARGE B-CELL LYMPHOMA
     Dosage: LAST DOSE 100MG, DATE OF LAST DOSE PRIOR TO SAE 24/NOV/2012
     Route: 048
     Dates: start: 20121002
  8. SENOKOT [Concomitant]
     Active Substance: SENNOSIDES
     Indication: CONSTIPATION PROPHYLAXIS
     Route: 065
     Dates: start: 20121002, end: 20130309
  9. ACYCLOVIR. [Concomitant]
     Active Substance: ACYCLOVIR
     Indication: INFECTION PROPHYLAXIS
     Route: 065
     Dates: start: 20121002, end: 20130401
  10. CYCLOPHOSPHAMIDE. [Suspect]
     Active Substance: CYCLOPHOSPHAMIDE
     Indication: DIFFUSE LARGE B-CELL LYMPHOMA
     Dosage: LAST DOSE 1170MG, DATE OF LAST DOSE PRIOR TO SAE 20/NOV/2012
     Route: 042
     Dates: start: 20121002
  11. CYPROHEPTADINE. [Concomitant]
     Active Substance: CYPROHEPTADINE
     Route: 065
     Dates: start: 20121002, end: 20130430
  12. VINCRISTINE [Suspect]
     Active Substance: VINCRISTINE
     Indication: DIFFUSE LARGE B-CELL LYMPHOMA
     Dosage: LAST DOSE 2MG, DATE OF LAST DOSE PRIOR TOS SAE 20/NOV/2012
     Route: 040
     Dates: start: 20121002
  13. DEXAMETHASONE. [Concomitant]
     Active Substance: DEXAMETHASONE
     Indication: PREMEDICATION
     Route: 065
     Dates: start: 20121002, end: 20130305
  14. ONSIA [Concomitant]
     Indication: PROPHYLAXIS OF NAUSEA AND VOMITING
     Route: 065
     Dates: start: 20121002, end: 20130309
  15. AMOXYCILLIN [Concomitant]
     Active Substance: AMOXICILLIN
     Indication: INTERSTITIAL LUNG DISEASE
     Route: 065
     Dates: start: 20121113, end: 20121126
  16. KLACID UNO [Concomitant]
     Indication: INTERSTITIAL LUNG DISEASE
     Route: 065
     Dates: start: 20121113, end: 20121126

REACTIONS (2)
  - Intestinal obstruction [Recovered/Resolved]
  - Neutropenia [Recovered/Resolved]

NARRATIVE: CASE EVENT DATE: 20121126
